FAERS Safety Report 15534082 (Version 2)
Quarter: 2018Q4

REPORT INFORMATION
  Report Type: Spontaneous
  Country: JP (occurrence: JP)
  Receive Date: 20181019
  Receipt Date: 20181113
  Transmission Date: 20190205
  Serious: Yes (Death, Other)
  Sender: FDA-Public Use
  Company Number: JP-SHIONOGI, INC.-2018001163

PATIENT
  Age: 79 Year
  Sex: Male
  Weight: 66 kg

DRUGS (7)
  1. FUROSEMIDE. [Concomitant]
     Active Substance: FUROSEMIDE
     Indication: HYPERTENSION
     Dosage: 10 MG, QD
     Route: 048
     Dates: start: 20170131, end: 20170213
  2. SAMSCA [Suspect]
     Active Substance: TOLVAPTAN
     Dosage: 7.5 MG, QD
     Route: 048
     Dates: start: 20170210
  3. MULPLETA [Suspect]
     Active Substance: LUSUTROMBOPAG
     Indication: THROMBOCYTOPENIA
     Dosage: 3 MG, QD
     Route: 048
     Dates: start: 20170315, end: 20170321
  4. SAMSCA [Suspect]
     Active Substance: TOLVAPTAN
     Indication: ASCITES
     Dosage: 3.75 MG, QD
     Route: 048
     Dates: start: 20170206, end: 20170209
  5. FEBURIC [Concomitant]
     Active Substance: FEBUXOSTAT
     Indication: HYPERURICAEMIA
     Dosage: 200 MG, QD
     Route: 048
     Dates: start: 20160624
  6. MULPLETA [Suspect]
     Active Substance: LUSUTROMBOPAG
     Indication: LARGE INTESTINE POLYP
  7. SPIRONOLACTONE. [Concomitant]
     Active Substance: SPIRONOLACTONE
     Indication: HYPERTENSION
     Dosage: 25 MG, QD
     Route: 048
     Dates: start: 20170131

REACTIONS (2)
  - Mesenteric vein thrombosis [Not Recovered/Not Resolved]
  - Hepatic failure [Fatal]

NARRATIVE: CASE EVENT DATE: 20170516
